FAERS Safety Report 13587599 (Version 1)
Quarter: 2017Q2

REPORT INFORMATION
  Report Type: Spontaneous
  Country: US (occurrence: US)
  Receive Date: 20170526
  Receipt Date: 20170526
  Transmission Date: 20170830
  Serious: Yes (Hospitalization)
  Sender: FDA-Public Use
  Company Number: None

PATIENT
  Age: 86 Year
  Sex: Male
  Weight: 102.87 kg

DRUGS (1)
  1. SITAGLIPTIN [Suspect]
     Active Substance: SITAGLIPTIN
     Indication: DIABETES MELLITUS
     Route: 048
     Dates: start: 20170317, end: 20170504

REACTIONS (5)
  - Fatigue [None]
  - Therapy cessation [None]
  - Cardiac failure congestive [None]
  - Dyspnoea exertional [None]
  - Weight increased [None]

NARRATIVE: CASE EVENT DATE: 20170504
